FAERS Safety Report 22778443 (Version 11)
Quarter: 2023Q4

REPORT INFORMATION
  Report Type: Report from Study
  Country: US (occurrence: US)
  Receive Date: 20230802
  Receipt Date: 20231218
  Transmission Date: 20240110
  Serious: Yes (Hospitalization, Other)
  Sender: FDA-Public Use
  Company Number: US-002147023-NVSC2023US169312

PATIENT
  Age: 80 Year
  Sex: Female

DRUGS (6)
  1. PIQRAY [Suspect]
     Active Substance: ALPELISIB
     Indication: Hormone receptor positive HER2 negative breast cancer
     Dosage: 300 MG, QD
     Route: 048
  2. PIQRAY [Suspect]
     Active Substance: ALPELISIB
     Dosage: 250 MG
     Route: 065
  3. PIQRAY [Suspect]
     Active Substance: ALPELISIB
     Dosage: UNK, QD
     Route: 048
     Dates: start: 20230705
  4. PIQRAY [Suspect]
     Active Substance: ALPELISIB
     Dosage: 300 MG, QD
     Route: 048
     Dates: start: 202307
  5. PIQRAY [Suspect]
     Active Substance: ALPELISIB
     Dosage: 250 MG, QD
     Route: 048
     Dates: start: 20230802
  6. PIQRAY [Suspect]
     Active Substance: ALPELISIB
     Dosage: 200 MG, QOD
     Route: 048
     Dates: start: 202311

REACTIONS (8)
  - Pneumonia [Unknown]
  - Colitis [Unknown]
  - Retching [Unknown]
  - Asthenia [Recovered/Resolved]
  - Nausea [Unknown]
  - Hyperglycaemia [Unknown]
  - Diarrhoea [Unknown]
  - Alopecia [Unknown]

NARRATIVE: CASE EVENT DATE: 20230701
